FAERS Safety Report 8043287-9 (Version None)
Quarter: 2012Q1

REPORT INFORMATION
  Report Type: 
  Country: None (occurrence: None)
  Receive Date: 20120112
  Receipt Date: 20120106
  Transmission Date: 20120608
  Serious: Yes (Hospitalization, Congenital Anomaly)
  Sender: FDA-Public Use
  Company Number: US-GLAXOSMITHKLINE-A0917837A

PATIENT
  Sex: Male

DRUGS (1)
  1. PAXIL [Suspect]
     Indication: PRODUCT USED FOR UNKNOWN INDICATION
     Route: 064

REACTIONS (10)
  - CONGENITAL PULMONARY VALVE ATRESIA [None]
  - FOETAL EXPOSURE DURING PREGNANCY [None]
  - RIGHT AORTIC ARCH [None]
  - CARDIAC VENTRICULAR DISORDER [None]
  - TRANSPOSITION OF THE GREAT VESSELS [None]
  - ATRIAL SEPTAL DEFECT [None]
  - PATENT DUCTUS ARTERIOSUS [None]
  - DOUBLE OUTLET RIGHT VENTRICLE [None]
  - AORTIC VALVE ATRESIA [None]
  - VENTRICULAR SEPTAL DEFECT [None]
